FAERS Safety Report 20885360 (Version 3)
Quarter: 2022Q4

REPORT INFORMATION
  Report Type: Report from Study
  Country: US (occurrence: US)
  Receive Date: 20220527
  Receipt Date: 20221219
  Transmission Date: 20230112
  Serious: Yes (Hospitalization)
  Sender: FDA-Public Use
  Company Number: US-KYOWAKIRIN-2022BKK007487

PATIENT

DRUGS (7)
  1. CRYSVITA [Suspect]
     Active Substance: BUROSUMAB-TWZA
     Indication: Osteomalacia
     Dosage: 50 MG, 1X/4 WEEKS
     Route: 058
     Dates: start: 20210209
  2. CRYSVITA [Suspect]
     Active Substance: BUROSUMAB-TWZA
     Dosage: UNK, DOSE WAS INCREASED IN SEPTEMBER/OCTOBER 2021
     Route: 065
     Dates: start: 2021
  3. CRYSVITA [Suspect]
     Active Substance: BUROSUMAB-TWZA
     Dosage: 50 MG, 1X/4 WEEKS
     Route: 058
  4. CRYSVITA [Suspect]
     Active Substance: BUROSUMAB-TWZA
     Dosage: 50 MG, 1X/4 WEEKS
     Route: 058
  5. CRYSVITA [Suspect]
     Active Substance: BUROSUMAB-TWZA
     Indication: Osteomalacia
     Dosage: 50 MG, 1X/4 WEEKS
     Route: 058
     Dates: start: 20210209
  6. CRYSVITA [Suspect]
     Active Substance: BUROSUMAB-TWZA
     Dosage: DOSE WAS INCREASED IN SEPTEMBER/OCTOBER 2021
     Route: 065
     Dates: start: 2021
  7. CRYSVITA [Suspect]
     Active Substance: BUROSUMAB-TWZA
     Dosage: 50 MG, 1X/4 WEEKS
     Route: 058

REACTIONS (6)
  - Pleural effusion [Unknown]
  - Hyperthermia [Unknown]
  - Influenza [Recovered/Resolved]
  - Fatigue [Recovering/Resolving]
  - Musculoskeletal discomfort [Recovering/Resolving]
  - Inappropriate schedule of product administration [Unknown]

NARRATIVE: CASE EVENT DATE: 20220325
